FAERS Safety Report 8588593-4 (Version None)
Quarter: 2012Q3

REPORT INFORMATION
  Report Type: 
  Country: None (occurrence: None)
  Receive Date: 20120813
  Receipt Date: 20120806
  Transmission Date: 20120928
  Serious: Yes (Disabling, Other)
  Sender: FDA-Public Use
  Company Number: US-JNJFOC-20110605577

PATIENT
  Sex: Female
  Weight: 81.65 kg

DRUGS (8)
  1. LEVAQUIN [Suspect]
     Route: 065
     Dates: start: 20110328
  2. LEVAQUIN [Suspect]
     Indication: SINUSITIS
     Route: 065
     Dates: start: 20110323
  3. LEXAPRO [Concomitant]
     Route: 065
  4. BIMIXIN [Concomitant]
     Route: 065
  5. BIAXIN [Concomitant]
     Route: 065
  6. LEVAQUIN [Suspect]
     Route: 065
     Dates: start: 20110418
  7. SINGULAIR [Concomitant]
     Route: 065
  8. LEVOXYL [Concomitant]
     Route: 065

REACTIONS (5)
  - CYSTIC FIBROSIS [None]
  - SYNOVIAL CYST [None]
  - ARTHRALGIA [None]
  - MENISCUS LESION [None]
  - OSTEOARTHRITIS [None]
